FAERS Safety Report 17567562 (Version 4)
Quarter: 2020Q2

REPORT INFORMATION
  Report Type: Report from Study
  Country: CL (occurrence: CL)
  Receive Date: 20200320
  Receipt Date: 20200410
  Transmission Date: 20200713
  Serious: Yes (Death, Hospitalization)
  Sender: FDA-Public Use
  Company Number: CL-ROCHE-2564641

PATIENT
  Age: 68 Year
  Sex: Male
  Weight: 57.3 kg

DRUGS (16)
  1. XYLITOL [Concomitant]
     Active Substance: XYLITOL
     Indication: MUCOSAL INFLAMMATION
     Dosage: 5 ML (MILLILITER; CM3)
     Route: 048
     Dates: start: 20191211
  2. CILOSTAZOL. [Concomitant]
     Active Substance: CILOSTAZOL
     Indication: EMBOLISM VENOUS
     Route: 065
     Dates: start: 201909
  3. FENTANIL [Concomitant]
     Active Substance: FENTANYL
     Indication: PAIN
     Dosage: 1 UNIT
     Route: 061
     Dates: start: 201910
  4. ONDANSETRON [Concomitant]
     Active Substance: ONDANSETRON
     Indication: NAUSEA
     Route: 048
  5. FLEET ENEMA [Concomitant]
     Active Substance: SODIUM PHOSPHATE, DIBASIC\SODIUM PHOSPHATE, MONOBASIC
     Indication: FAECALOMA
     Dosage: 1 OTHER
     Route: 050
     Dates: start: 20191204
  6. PREDNISONE. [Concomitant]
     Active Substance: PREDNISONE
     Indication: ALANINE AMINOTRANSFERASE INCREASED
     Route: 047
     Dates: start: 20200204, end: 20200205
  7. ACENOCUMAROL [Concomitant]
     Active Substance: ACENOCOUMAROL
     Indication: EMBOLISM VENOUS
     Route: 048
     Dates: start: 201812
  8. LACTULOSE. [Concomitant]
     Active Substance: LACTULOSE
     Indication: FAECALOMA
     Dosage: 10 ML (MILLILITER; CM3)
     Route: 048
     Dates: start: 20191204
  9. CLONAZEPAM. [Concomitant]
     Active Substance: CLONAZEPAM
     Indication: ANXIETY
     Route: 048
     Dates: start: 20191127
  10. PREDNISONE. [Concomitant]
     Active Substance: PREDNISONE
     Route: 048
     Dates: start: 20200213
  11. ATEZOLIZUMAB. [Suspect]
     Active Substance: ATEZOLIZUMAB
     Indication: NON-SMALL CELL LUNG CANCER
     Dosage: DATE OF MOST RECENT DOSE OF ATEZOLIZUMAB (1200 MG ) IV PRIOR TO SAE ONSET 14 FEB 2020 AT 09 00
     Route: 041
     Dates: start: 20200214
  12. TRAMADOL. [Concomitant]
     Active Substance: TRAMADOL
     Indication: PAIN
     Route: 048
     Dates: start: 20191211
  13. ATEZOLIZUMAB. [Suspect]
     Active Substance: ATEZOLIZUMAB
     Indication: NON-SMALL CELL LUNG CANCER
     Dosage: DATE OF MOST RECENT DOSE OF ATEZOLIZUMAB (1800 MG) SC FOR CO-MIX PRIOR TO ONSET 02/JAN/2020 AT 10.58
     Route: 058
     Dates: start: 20191107
  14. RHUPH20 [Suspect]
     Active Substance: HYALURONIDASE (HUMAN RECOMBINANT)
     Indication: NON-SMALL CELL LUNG CANCER
     Dosage: DATE OF MOST RECENT DOSE OF RHUPH20 (2000 U/ML) PRIOR TO SAE ONSET 02 JAN 2020 AT 10 58
     Route: 058
  15. PREDNISONE. [Concomitant]
     Active Substance: PREDNISONE
     Indication: ASPARTATE AMINOTRANSFERASE INCREASED
     Dosage: 40
     Route: 048
     Dates: start: 20200201, end: 20200203
  16. PREDNISONE. [Concomitant]
     Active Substance: PREDNISONE
     Indication: TRANSAMINASES INCREASED
     Route: 048
     Dates: start: 20200206, end: 20200212

REACTIONS (1)
  - Ischaemic stroke [Fatal]

NARRATIVE: CASE EVENT DATE: 20200303
